FAERS Safety Report 9718952 (Version 3)
Quarter: 2013Q4

REPORT INFORMATION
  Report Type: Report from Study
  Country: US (occurrence: US)
  Receive Date: 20131127
  Receipt Date: 20131223
  Transmission Date: 20140711
  Serious: Yes (Death, Hospitalization, Other)
  Sender: FDA-Public Use
  Company Number: US-ACTELION-A-US2013-87268

PATIENT
  Age: 71 Year
  Sex: Female

DRUGS (16)
  1. TRACLEER [Suspect]
     Indication: PULMONARY ARTERIAL HYPERTENSION
     Dosage: 125 MG, BID
     Route: 048
     Dates: end: 201310
  2. TRACLEER [Suspect]
     Dosage: UNK
     Route: 048
     Dates: start: 2007
  3. OXYGEN [Concomitant]
     Dosage: 2.5 L/MIN, UNK
  4. ALLOPURINOL [Concomitant]
     Dosage: 300 MG, QD
     Dates: start: 2010
  5. FUROSEMIDE [Concomitant]
     Dosage: 60 MG, QD
     Dates: start: 2010
  6. PAXIL [Concomitant]
     Dosage: 4 MG, QD
     Dates: start: 2010
  7. ALDACTONE [Concomitant]
     Dosage: 25 MG, QD
     Dates: start: 2010
  8. CARDIZEM [Concomitant]
     Dosage: 240 MG, UNK
     Dates: start: 2010
  9. RANEXA [Concomitant]
     Dosage: 500 MG, BID
     Dates: start: 2010
  10. PRAVASTATIN [Concomitant]
     Dosage: 200 MG (TITER), QD
     Dates: start: 2010
  11. METOPROLOL [Concomitant]
     Dosage: 25 MG, BID
     Dates: start: 2010
  12. SYNTHROID [Concomitant]
     Dosage: 25 MCG, QD
     Dates: start: 2010
  13. HUMALOG [Concomitant]
     Dosage: UNK
     Dates: start: 2010
  14. LANTUS [Concomitant]
     Dosage: 40 UNITS DAILY
  15. ZAROXOLYN [Concomitant]
     Dosage: 5 MG, PRN
     Dates: start: 2010
  16. MIRALAX [Concomitant]
     Dosage: 1 CAPFUL AS NEEDED DAILY
     Dates: start: 2010

REACTIONS (9)
  - Death [Fatal]
  - Oedema [Unknown]
  - Fatigue [Unknown]
  - Palpitations [Unknown]
  - Asthenia [Unknown]
  - Red blood cell count decreased [Not Recovered/Not Resolved]
  - Transfusion [Unknown]
  - Pulmonary arterial hypertension [Not Recovered/Not Resolved]
  - Condition aggravated [Not Recovered/Not Resolved]
